FAERS Safety Report 6361375-X (Version None)
Quarter: 2009Q3

REPORT INFORMATION
  Report Type: 
  Country: None (occurrence: None)
  Receive Date: 20090918
  Receipt Date: 20090917
  Transmission Date: 20100115
  Serious: Yes (Hospitalization)
  Sender: FDA-Public Use
  Company Number: US-B.I. PHARMACEUTICALS,INC./RIDGEFIELD-2009-BP-09508BP

PATIENT
  Age: 73 Year
  Sex: Male
  Weight: 135.17 kg

DRUGS (13)
  1. SPIRIVA [Suspect]
     Indication: EMPHYSEMA
     Dosage: 18 MCG
     Route: 055
  2. SPIRIVA [Suspect]
     Indication: ASTHMA
  3. SPIRIVA [Suspect]
     Indication: CHRONIC OBSTRUCTIVE PULMONARY DISEASE
  4. SINGULAIR [Concomitant]
     Indication: HYPERSENSITIVITY
     Dosage: 10 MG
     Route: 048
  5. XOPENEX [Concomitant]
     Indication: ASTHMA
     Route: 048
  6. SYMBICORT [Concomitant]
     Indication: ASTHMA
  7. MUCINEX [Concomitant]
     Indication: ASTHMA
  8. OXYGEN [Concomitant]
     Indication: EMPHYSEMA
  9. ALLOPURINOL [Concomitant]
     Dosage: 100 MG
  10. KLOR-CON [Concomitant]
     Dosage: 20 MEQ
  11. ZOCOR [Concomitant]
     Dosage: 40 MG
  12. KLONOPIN [Concomitant]
     Route: 048
  13. NEXIUM [Concomitant]
     Dosage: 40 MG
     Route: 048

REACTIONS (4)
  - DEEP VEIN THROMBOSIS [None]
  - DRUG INEFFECTIVE [None]
  - LOWER LIMB FRACTURE [None]
  - PULMONARY EMBOLISM [None]
